FAERS Safety Report 18627686 (Version 3)
Quarter: 2022Q1

REPORT INFORMATION
  Report Type: Spontaneous
  Country: US (occurrence: US)
  Receive Date: 20201217
  Receipt Date: 20220209
  Transmission Date: 20220423
  Serious: Yes (Other)
  Sender: FDA-Public Use
  Company Number: US-SA-2020SA359820

PATIENT
  Age: 72 Year
  Sex: Male

DRUGS (1)
  1. DUPIXENT [Suspect]
     Active Substance: DUPILUMAB
     Dosage: 300 MG,OTHER
     Route: 058

REACTIONS (4)
  - Rheumatoid arthritis [Unknown]
  - Tongue blistering [Unknown]
  - Tongue erythema [Unknown]
  - Scalloped tongue [Unknown]

NARRATIVE: CASE EVENT DATE: 20201210
